APPROVED DRUG PRODUCT: PROPAFENONE HYDROCHLORIDE
Active Ingredient: PROPAFENONE HYDROCHLORIDE
Strength: 150MG
Dosage Form/Route: TABLET;ORAL
Application: A075998 | Product #001
Applicant: SUN PHARMACEUTICAL INDUSTRIES INC
Approved: Nov 29, 2001 | RLD: No | RS: No | Type: DISCN